FAERS Safety Report 11546967 (Version 1)
Quarter: 2015Q3

REPORT INFORMATION
  Report Type: Spontaneous
  Country: DE (occurrence: DE)
  Receive Date: 20150924
  Receipt Date: 20150924
  Transmission Date: 20151125
  Serious: Yes (Other)
  Sender: FDA-Public Use
  Company Number: DE-009507513-1509DEU012374

PATIENT
  Age: 62 Year

DRUGS (5)
  1. LIDOCAINE. [Suspect]
     Active Substance: LIDOCAINE
     Indication: VENTRICULAR FIBRILLATION
     Dosage: 20 ML/H
     Route: 042
  2. AMIODARONE [Concomitant]
     Active Substance: AMIODARONE
     Indication: VENTRICULAR FIBRILLATION
  3. FLECAINIDE [Concomitant]
     Active Substance: FLECAINIDE
     Indication: VENTRICULAR FIBRILLATION
  4. LIDOCAINE HYDROCHLORIDE. [Suspect]
     Active Substance: LIDOCAINE HYDROCHLORIDE
     Indication: PRODUCT USED FOR UNKNOWN INDICATION
     Dosage: 15 ML, UNKNOWN
     Route: 061
  5. METOPROLOL [Concomitant]
     Active Substance: METOPROLOL
     Indication: VENTRICULAR FIBRILLATION

REACTIONS (2)
  - Epilepsy [Unknown]
  - Horner^s syndrome [Unknown]
